FAERS Safety Report 17088243 (Version 1)
Quarter: 2019Q4

REPORT INFORMATION
  Report Type: Spontaneous
  Country: US (occurrence: US)
  Receive Date: 20191128
  Receipt Date: 20191128
  Transmission Date: 20200122
  Serious: No
  Sender: FDA-Public Use
  Company Number: US-TEVA-2019-US-1144363

PATIENT
  Sex: Female

DRUGS (1)
  1. METAXALONE. [Suspect]
     Active Substance: METAXALONE
     Indication: MUSCULOSKELETAL PAIN
     Route: 065

REACTIONS (2)
  - Drug ineffective [Unknown]
  - Product residue present [Unknown]
